FAERS Safety Report 16430188 (Version 1)
Quarter: 2019Q2

REPORT INFORMATION
  Report Type: Spontaneous
  Country: US (occurrence: US)
  Receive Date: 20190614
  Receipt Date: 20190614
  Transmission Date: 20190711
  Serious: Yes (Other)
  Sender: FDA-Public Use
  Company Number: US-ELI_LILLY_AND_COMPANY-US201906002955

PATIENT
  Sex: Male

DRUGS (3)
  1. BASAGLAR [Suspect]
     Active Substance: INSULIN GLARGINE
     Dosage: UNK, UNKNOWN
     Route: 065
  2. HUMALOG [Suspect]
     Active Substance: INSULIN LISPRO
     Indication: TYPE 2 DIABETES MELLITUS
     Dosage: UNK, UNKNOWN
     Route: 065
  3. BASAGLAR [Suspect]
     Active Substance: INSULIN GLARGINE
     Indication: TYPE 2 DIABETES MELLITUS
     Dosage: UNK, UNKNOWN
     Route: 065

REACTIONS (13)
  - Headache [Unknown]
  - Rash [Unknown]
  - Depressed mood [Unknown]
  - Neck pain [Unknown]
  - Musculoskeletal disorder [Unknown]
  - Chest pain [Unknown]
  - Stress [Unknown]
  - Arthralgia [Unknown]
  - Tremor [Unknown]
  - Pruritus [Unknown]
  - Mental impairment [Unknown]
  - Product storage error [Unknown]
  - Pain in extremity [Unknown]
